FAERS Safety Report 4532456-8 (Version None)
Quarter: 2004Q4

REPORT INFORMATION
  Report Type: 
  Country: None (occurrence: None)
  Receive Date: 20041220
  Receipt Date: 20040401
  Transmission Date: 20050328
  Serious: Yes (Death, Hospitalization)
  Sender: FDA-Public Use
  Company Number: US-MERCK-0404USA00094

PATIENT
  Age: 40 Year
  Sex: Male
  Weight: 100 kg

DRUGS (16)
  1. VIOXX [Suspect]
     Indication: BACK PAIN
     Route: 048
     Dates: start: 20010806, end: 20020316
  2. VIOXX [Suspect]
     Route: 048
     Dates: start: 20011212
  3. VIOXX [Suspect]
     Route: 048
  4. VIOXX [Suspect]
     Route: 065
     Dates: start: 20010329
  5. TOPROL-XL [Concomitant]
     Indication: HYPERTENSION
     Route: 065
     Dates: start: 19990101, end: 20020101
  6. TOPROL-XL [Concomitant]
     Route: 065
     Dates: start: 19920101, end: 19930101
  7. NORVASC [Concomitant]
     Indication: HYPERTENSION
     Route: 065
     Dates: start: 19920101, end: 19930101
  8. NORVASC [Concomitant]
     Route: 065
     Dates: start: 19990101, end: 20020101
  9. CLARITIN-D [Concomitant]
     Indication: HYPERSENSITIVITY
     Route: 048
  10. TYLENOL (CAPLET) [Concomitant]
     Route: 065
  11. WELLBUTRIN SR [Concomitant]
     Indication: EX-SMOKER
     Route: 065
     Dates: start: 20020201
  12. ALBUTEROL [Concomitant]
     Route: 065
  13. NORFLEX [Concomitant]
     Route: 065
  14. NORFLEX [Concomitant]
     Route: 065
  15. NAPROSYN [Concomitant]
     Route: 065
  16. NAPROSYN [Concomitant]
     Route: 065

REACTIONS (20)
  - ANOXIC ENCEPHALOPATHY [None]
  - ANXIETY [None]
  - APNOEA [None]
  - BACK PAIN [None]
  - CARDIO-RESPIRATORY ARREST [None]
  - CHRONIC OBSTRUCTIVE AIRWAYS DISEASE [None]
  - CONVULSION [None]
  - CORONARY ARTERY DISEASE [None]
  - COUGH [None]
  - DYSLIPIDAEMIA [None]
  - EMOTIONAL DISTRESS [None]
  - INSOMNIA [None]
  - MALAISE [None]
  - MYOCARDIAL INFARCTION [None]
  - OBESITY [None]
  - PNEUMONIA [None]
  - PYREXIA [None]
  - RESPIRATORY FAILURE [None]
  - UPPER RESPIRATORY TRACT INFECTION [None]
  - VENTRICULAR FIBRILLATION [None]
